FAERS Safety Report 14365799 (Version 2)
Quarter: 2018Q1

REPORT INFORMATION
  Report Type: Spontaneous
  Country: IT (occurrence: IT)
  Receive Date: 20180109
  Receipt Date: 20180119
  Transmission Date: 20180509
  Serious: Yes (Hospitalization)
  Sender: FDA-Public Use
  Company Number: IT-CONCORDIA PHARMACEUTICALS INC.-E2B_00009349

PATIENT
  Age: 85 Year
  Sex: Female

DRUGS (9)
  1. PANTORC 40 MG COMPRESSE GASTRORESISTENTI [Concomitant]
  2. CARVEDILOLO TEVA 6,25 MG COMPRESSE [Concomitant]
  3. LASIX [Concomitant]
     Active Substance: FUROSEMIDE
  4. ZOLOFT COMPRESSE RIVESTITE CON FILM 50 MG [Concomitant]
  5. ALIFLUS DISKUS 50 MICROGRAMMI/500 MICROGRAMMI/DOSE DI POLVERE PER INAL [Concomitant]
     Indication: CHRONIC OBSTRUCTIVE PULMONARY DISEASE
  6. DIGOXIN. [Suspect]
     Active Substance: DIGOXIN
     Indication: ATRIAL FIBRILLATION
     Route: 048
  7. SPIRIVA 18 MICROGRAMMI, POLVERE PER INALAZIONE, CAPSULA RIGIDA [Concomitant]
     Indication: CHRONIC OBSTRUCTIVE PULMONARY DISEASE
  8. ZUGLIMET [Concomitant]
     Active Substance: METFORMIN HYDROCHLORIDE
     Indication: DIABETES MELLITUS
  9. LIXIANA 30 MG FILM-COATED TABLETS [Concomitant]
     Indication: ATRIAL FIBRILLATION

REACTIONS (6)
  - Medication error [Unknown]
  - Toxicity to various agents [Unknown]
  - Asthenia [Unknown]
  - Hypotension [Unknown]
  - Dyspnoea [Unknown]
  - Bradycardia [Unknown]

NARRATIVE: CASE EVENT DATE: 20170829
